FAERS Safety Report 8103699-1 (Version None)
Quarter: 2012Q1

REPORT INFORMATION
  Report Type: 
  Country: None (occurrence: None)
  Receive Date: 20120201
  Receipt Date: 20120126
  Transmission Date: 20120608
  Serious: Yes (Hospitalization)
  Sender: FDA-Public Use
  Company Number: FR-PFIZER INC-2011281451

PATIENT
  Age: 80 Year
  Sex: Male

DRUGS (13)
  1. NEXIUM [Concomitant]
     Dosage: 40 MG, UNK
  2. RAMIPRIL [Concomitant]
     Dosage: 1.25 MG, UNK
     Route: 048
     Dates: start: 20111004
  3. ATORVASTATIN [Suspect]
     Dosage: 40 MG, UNK
     Route: 048
     Dates: start: 20111020, end: 20111024
  4. PLAVIX [Concomitant]
     Indication: INFARCTION
     Dosage: 75 MG, UNK
     Route: 048
     Dates: start: 20110901
  5. INSPRA [Concomitant]
     Dosage: 25 MG, UNK
  6. BISOPROLOL [Concomitant]
     Dosage: 1.25 MG, UNK
  7. LASIX [Concomitant]
     Dosage: 40 MG, UNK
  8. ALFUZOSIN HCL [Concomitant]
     Dosage: 10 MG, UNK
     Route: 048
     Dates: start: 20111004
  9. REOPRO [Concomitant]
  10. ZOLPIDEM [Concomitant]
     Dosage: 10 MG, UNK
     Route: 048
     Dates: start: 20110930
  11. ATORVASTATIN [Suspect]
     Indication: INFARCTION
     Dosage: 40 MG, UNK
     Route: 048
     Dates: start: 20110901, end: 20111014
  12. ASPIRIN [Concomitant]
     Indication: INFARCTION
     Dosage: 75 MG, UNK
     Route: 048
     Dates: start: 20110901
  13. PROCORALAN [Concomitant]
     Dosage: 5 MG, UNK

REACTIONS (2)
  - ACUTE RESPIRATORY DISTRESS SYNDROME [None]
  - THROMBOCYTOPENIA [None]
